FAERS Safety Report 5531358-8 (Version None)
Quarter: 2007Q4

REPORT INFORMATION
  Report Type: 
  Country: None (occurrence: None)
  Receive Date: 20071128
  Receipt Date: 20071112
  Transmission Date: 20080405
  Serious: Yes (Hospitalization)
  Sender: FDA-Public Use
  Company Number: 100#08#2007-04882

PATIENT
  Age: 80 Year
  Sex: Male

DRUGS (1)
  1. AMIODARONE HCL [Suspect]
     Indication: SICK SINUS SYNDROME
     Dosage: ORAL APPROX. ONE MONTH
     Route: 048

REACTIONS (4)
  - DRUG TOXICITY [None]
  - HAEMATOTOXICITY [None]
  - PANCYTOPENIA [None]
  - PULMONARY HYPERTENSION [None]
